FAERS Safety Report 6615869-X (Version None)
Quarter: 2010Q1

REPORT INFORMATION
  Report Type: 
  Country: None (occurrence: None)
  Receive Date: 20100305
  Receipt Date: 20100226
  Transmission Date: 20100710
  Serious: Yes (Other)
  Sender: FDA-Public Use
  Company Number: FR-WYE-G05623610

PATIENT
  Sex: Male
  Weight: 75 kg

DRUGS (1)
  1. REFACTO [Suspect]
     Indication: FACTOR VIII DEFICIENCY
     Dosage: 3 500 IU PER INJECTION, ON DEMAND
     Route: 042
     Dates: start: 20091001

REACTIONS (2)
  - FACTOR VIII INHIBITION [None]
  - HAEMARTHROSIS [None]
